FAERS Safety Report 4399073-4 (Version None)
Quarter: 2004Q2

REPORT INFORMATION
  Report Type: 
  Country: None (occurrence: None)
  Receive Date: 20040621
  Receipt Date: 20040408
  Transmission Date: 20050107
  Serious: Yes (Death)
  Sender: FDA-Public Use
  Company Number: 200398

PATIENT
  Age: 37 Year
  Sex: Female
  Weight: 34 kg

DRUGS (12)
  1. OXYCONTIN [Suspect]
     Indication: PAIN
  2. HYDROCODONE BITARTRATE [Suspect]
  3. ACETAMINOPHEN [Suspect]
  4. ALPRAZOLAM [Suspect]
  5. CARISOPRODOL [Suspect]
  6. MEPROBAMATE [Suspect]
  7. ROXILOX [Concomitant]
  8. VIOXX [Concomitant]
  9. LORTAB [Concomitant]
  10. BENTYL [Concomitant]
  11. FLOXIN [Concomitant]
  12. GUAIFEN [Concomitant]

REACTIONS (2)
  - ACCIDENTAL OVERDOSE [None]
  - MULTIPLE DRUG OVERDOSE [None]
